FAERS Safety Report 5726776-9 (Version None)
Quarter: 2008Q2

REPORT INFORMATION
  Report Type: 
  Country: None (occurrence: None)
  Receive Date: 20080502
  Receipt Date: 20080423
  Transmission Date: 20081010
  Serious: Yes (Other)
  Sender: FDA-Public Use
  Company Number: DK-PFIZER INC-2007105231

PATIENT
  Sex: Female

DRUGS (2)
  1. GENOTROPIN [Suspect]
     Indication: TURNER'S SYNDROME
     Route: 058
     Dates: start: 20000809, end: 20040528
  2. OESTRADIOL [Concomitant]
     Route: 048
     Dates: start: 20031022, end: 20050525

REACTIONS (1)
  - MELANOCYTIC NAEVUS [None]
